FAERS Safety Report 14309361 (Version 1)
Quarter: 2017Q4

REPORT INFORMATION
  Report Type: Spontaneous
  Country: BR (occurrence: BR)
  Receive Date: 20171220
  Receipt Date: 20171220
  Transmission Date: 20180321
  Serious: Yes (Other)
  Sender: FDA-Public Use
  Company Number: BR-ABBVIE-17P-020-2183446-00

PATIENT
  Sex: Female
  Weight: 15.5 kg

DRUGS (6)
  1. GARDENAL [Concomitant]
     Active Substance: PHENOBARBITAL
     Indication: EPILEPSY
     Dosage: 20 DROPS IN THE MORNING / 40 DROPS AT NIGHT
     Route: 048
  2. KEPPRA [Concomitant]
     Active Substance: LEVETIRACETAM
     Indication: EPILEPSY
     Dosage: IN THE MORNING/AT NIGHT
     Route: 048
  3. DIAZEPAM. [Concomitant]
     Active Substance: DIAZEPAM
     Indication: EPILEPSY
  4. DEPAKOTE [Suspect]
     Active Substance: DIVALPROEX SODIUM
     Indication: IDIOPATHIC GENERALISED EPILEPSY
     Dosage: 2 CAPSULES IN THE MORNING / 1 CAPSULE AT THE AFTERNOON / 2 CAPSULES AT NIGHT
     Route: 048
     Dates: start: 2017
  5. FRISIUM [Concomitant]
     Active Substance: CLOBAZAM
     Indication: EPILEPSY
     Dosage: 0.5 TABLET IN THE MORNING / 1 TABLET AT NIGHT - UNKNOWN FORM STRENGTH
     Route: 048
  6. DEPAKENE [Suspect]
     Active Substance: VALPROIC ACID
     Indication: EPILEPSY
     Route: 065

REACTIONS (4)
  - Eye irritation [Unknown]
  - Blood cholesterol increased [Unknown]
  - Epilepsy [Not Recovered/Not Resolved]
  - Product use issue [Unknown]

NARRATIVE: CASE EVENT DATE: 2017
